FAERS Safety Report 14564426 (Version 2)
Quarter: 2018Q2

REPORT INFORMATION
  Report Type: Spontaneous
  Country: LU (occurrence: LU)
  Receive Date: 20180222
  Receipt Date: 20180401
  Transmission Date: 20180711
  Serious: Yes (Disabling, Other)
  Sender: FDA-Public Use
  Company Number: PHHY2018LU026515

PATIENT
  Age: 75 Year
  Sex: Male

DRUGS (2)
  1. GLIVEC [Suspect]
     Active Substance: IMATINIB MESYLATE
     Indication: FIBROMATOSIS
     Dosage: 400 MG, BID
     Route: 065
     Dates: start: 20170715
  2. EMCONCOR [Concomitant]
     Active Substance: BISOPROLOL FUMARATE
     Indication: PRODUCT USED FOR UNKNOWN INDICATION
     Dosage: 2.5 MG, QD
     Route: 048

REACTIONS (6)
  - Visual acuity reduced [Recovering/Resolving]
  - Angiopathy [Unknown]
  - Vascular compression [Unknown]
  - Papilloedema [Unknown]
  - Product use in unapproved indication [Unknown]
  - Cystoid macular oedema [Unknown]

NARRATIVE: CASE EVENT DATE: 20170715
